FAERS Safety Report 4582505-6 (Version None)
Quarter: 2005Q1

REPORT INFORMATION
  Report Type: 
  Country: None (occurrence: None)
  Receive Date: 20050215
  Receipt Date: 20041213
  Transmission Date: 20050727
  Serious: Yes (Hospitalization)
  Sender: FDA-Public Use
  Company Number: JP-NOVOPROD-241129

PATIENT
  Age: 33 Year
  Sex: Male
  Weight: 41 kg

DRUGS (5)
  1. NOVORAPID CHU [Suspect]
     Indication: DIABETES MELLITUS INSULIN-DEPENDENT
     Dosage: 18-42 IU
     Route: 058
     Dates: start: 20041111, end: 20041127
  2. CEFAZOLIN [Concomitant]
     Indication: INFUSION SITE ABSCESS
     Dosage: 2 G, QD
     Dates: start: 20041111, end: 20041115
  3. INSULIN NOVOLET R [Suspect]
     Indication: DIABETES MELLITUS INSULIN-DEPENDENT
     Route: 058
     Dates: start: 20041111, end: 20041127
  4. PENFILL R CHU [Suspect]
     Indication: DIABETES MELLITUS INSULIN-DEPENDENT
     Dosage: 30 IU, QD
     Route: 058
     Dates: start: 20041128
  5. HUMULIN R [Concomitant]
     Route: 042
     Dates: start: 20041111

REACTIONS (6)
  - ALANINE AMINOTRANSFERASE INCREASED [None]
  - ASPARTATE AMINOTRANSFERASE INCREASED [None]
  - BLOOD ALKALINE PHOSPHATASE INCREASED [None]
  - BLOOD LACTATE DEHYDROGENASE INCREASED [None]
  - GAMMA-GLUTAMYLTRANSFERASE INCREASED [None]
  - LIVER DISORDER [None]
